FAERS Safety Report 11981354 (Version 1)
Quarter: 2016Q1

REPORT INFORMATION
  Report Type: Spontaneous
  Country: US (occurrence: None)
  Receive Date: 20160129
  Receipt Date: 20160129
  Transmission Date: 20160526
  Serious: Yes (Death)
  Sender: FDA-Public Use
  Company Number: None

PATIENT
  Age: 62 Year
  Sex: Female

DRUGS (6)
  1. VITAMIN D [Concomitant]
     Active Substance: CHOLECALCIFEROL
  2. CITALOPRAM [Concomitant]
     Active Substance: CITALOPRAM HYDROBROMIDE
  3. DIGOXIN. [Concomitant]
     Active Substance: DIGOXIN
  4. ADCIRCA [Suspect]
     Active Substance: TADALAFIL
     Indication: PULMONARY ARTERIAL HYPERTENSION
     Route: 048
     Dates: start: 20150618, end: 20160102
  5. SUCRALFATE. [Concomitant]
     Active Substance: SUCRALFATE
  6. LETAIRIS [Concomitant]
     Active Substance: AMBRISENTAN

REACTIONS (5)
  - Hepatic failure [None]
  - Renal failure [None]
  - Cardiac failure [None]
  - Disease progression [None]
  - Pulmonary hypertension [None]

NARRATIVE: CASE EVENT DATE: 20160102
